FAERS Safety Report 13942372 (Version 3)
Quarter: 2018Q1

REPORT INFORMATION
  Report Type: Spontaneous
  Country: CA (occurrence: CA)
  Receive Date: 20170906
  Receipt Date: 20180222
  Transmission Date: 20180508
  Serious: Yes (Other)
  Sender: FDA-Public Use
  Company Number: CA-SA-2017SA157117

PATIENT
  Age: 57 Year
  Sex: Male
  Weight: 91 kg

DRUGS (10)
  1. INFLECTRA [Suspect]
     Active Substance: INFLIXIMAB-DYYB
     Indication: RHEUMATOID ARTHRITIS
     Route: 042
     Dates: start: 20170817, end: 20170817
  2. METHOTREXATE SODIUM. [Suspect]
     Active Substance: METHOTREXATE SODIUM
     Route: 065
  3. CELEBREX [Suspect]
     Active Substance: CELECOXIB
     Route: 065
  4. FOLIC ACID. [Concomitant]
     Active Substance: FOLIC ACID
     Route: 065
  5. METHOTREXATE SODIUM. [Suspect]
     Active Substance: METHOTREXATE SODIUM
     Route: 065
  6. INFLECTRA [Suspect]
     Active Substance: INFLIXIMAB-DYYB
     Indication: RHEUMATOID ARTHRITIS
     Dosage: EVERY 8 WEEKS;
     Route: 042
     Dates: start: 20171002, end: 20171002
  7. INFLECTRA [Suspect]
     Active Substance: INFLIXIMAB-DYYB
     Indication: RHEUMATOID ARTHRITIS
     Dosage: EVERY 8 WEEKS;
     Route: 042
     Dates: start: 20171206, end: 20171206
  8. LEFLUNOMIDE. [Suspect]
     Active Substance: LEFLUNOMIDE
     Route: 065
  9. INFLECTRA [Suspect]
     Active Substance: INFLIXIMAB-DYYB
     Indication: RHEUMATOID ARTHRITIS
     Dosage: FREQUENCY: EVERY 2,6 WEEKS, THEN EVERY 8 WEEKS)
     Route: 042
     Dates: start: 20170126, end: 20170126
  10. INFLECTRA [Suspect]
     Active Substance: INFLIXIMAB-DYYB
     Indication: RHEUMATOID ARTHRITIS
     Dosage: EVERY 8 WEEKS
     Route: 042

REACTIONS (7)
  - Hydrocele [Unknown]
  - Post procedural infection [Unknown]
  - Weight decreased [Not Recovered/Not Resolved]
  - Drug effect incomplete [Unknown]
  - Blood pressure increased [Unknown]
  - Back pain [Unknown]
  - Sciatica [Unknown]
